FAERS Safety Report 4365853-4 (Version None)
Quarter: 2004Q2

REPORT INFORMATION
  Report Type: 
  Country: None (occurrence: None)
  Receive Date: 20040520
  Receipt Date: 20040511
  Transmission Date: 20050107
  Serious: Yes (Hospitalization)
  Sender: FDA-Public Use
  Company Number: FR-JNJFOC-20040502451

PATIENT
  Age: 79 Year
  Sex: Female

DRUGS (6)
  1. TRAMADOL HCL [Suspect]
     Indication: DRUG USE FOR UNKNOWN INDICATION
     Dosage: 200 MG, 2 IN 1 DAY, ORAL
     Route: 048
     Dates: start: 20040127, end: 20040327
  2. SINTROM [Suspect]
     Indication: DRUG USE FOR UNKNOWN INDICATION
     Dosage: 2 MG, 1 IN 1 DAY, ORAL
     Route: 048
     Dates: start: 20040127, end: 20040327
  3. CORDIPATCH (PATCH) GLYCERYL TRINITRATE [Concomitant]
  4. TETRAZEPAM (TETRAZEPAM) [Concomitant]
  5. ISOSORBIDE MONONITRATE [Concomitant]
  6. ZYRTEC [Concomitant]

REACTIONS (3)
  - DRUG INTERACTION [None]
  - HAEMATOMA [None]
  - PROTHROMBIN LEVEL DECREASED [None]
